FAERS Safety Report 19734248 (Version 2)
Quarter: 2021Q3

REPORT INFORMATION
  Report Type: Spontaneous
  Country: TR (occurrence: TR)
  Receive Date: 20210824
  Receipt Date: 20210903
  Transmission Date: 20211014
  Serious: Yes (Death)
  Sender: FDA-Public Use
  Company Number: TR-CELLTRION INC.-2021TR011392

PATIENT

DRUGS (5)
  1. IDARAM [IDARUBICIN] [Suspect]
     Active Substance: IDARUBICIN
  2. IDARAM [CYTARABINE] [Suspect]
     Active Substance: CYTARABINE
     Indication: RICHTER^S SYNDROME
  3. IDARAM [METHOTREXATE] [Suspect]
     Active Substance: METHOTREXATE
  4. RITUXIMAB. [Suspect]
     Active Substance: RITUXIMAB
     Indication: RICHTER^S SYNDROME
  5. IDARAM [DEXAMETHASONE] [Suspect]
     Active Substance: DEXAMETHASONE

REACTIONS (3)
  - Febrile neutropenia [Fatal]
  - Pneumonia [Fatal]
  - Sepsis [Fatal]
